FAERS Safety Report 7351162-8 (Version None)
Quarter: 2011Q1

REPORT INFORMATION
  Report Type: 
  Country: None (occurrence: None)
  Receive Date: 20110314
  Receipt Date: 20110307
  Transmission Date: 20110831
  Serious: Yes (Hospitalization, Other)
  Sender: FDA-Public Use
  Company Number: US-ELI_LILLY_AND_COMPANY-US201101004440

PATIENT
  Age: 77 Year
  Sex: Female

DRUGS (5)
  1. VITAMIN B-12 [Concomitant]
  2. ACTONEL [Concomitant]
  3. HUMALOG [Suspect]
     Indication: DIABETES MELLITUS
     Dosage: UNK, AS NEEDED
  4. VITAMINS WITH MINERALS [Concomitant]
  5. LANTUS [Concomitant]

REACTIONS (9)
  - DEPRESSED LEVEL OF CONSCIOUSNESS [None]
  - HYPERTENSION [None]
  - DIZZINESS [None]
  - FATIGUE [None]
  - BLOOD GLUCOSE INCREASED [None]
  - BLOOD POTASSIUM DECREASED [None]
  - VITAMIN B12 INCREASED [None]
  - BLOOD GLUCOSE DECREASED [None]
  - INSOMNIA [None]
